FAERS Safety Report 22631568 (Version 4)
Quarter: 2023Q2

REPORT INFORMATION
  Report Type: Report from Study
  Country: US (occurrence: US)
  Receive Date: 20230623
  Receipt Date: 20230626
  Transmission Date: 20230721
  Serious: No
  Sender: FDA-Public Use
  Company Number: US-002147023-NVSC2023US140347

PATIENT
  Age: 64 Year
  Sex: Male

DRUGS (2)
  1. COSENTYX [Suspect]
     Active Substance: SECUKINUMAB
     Indication: Product used for unknown indication
     Dosage: 150 MG, QW
     Route: 030
     Dates: start: 20230322, end: 20230614
  2. COSENTYX [Suspect]
     Active Substance: SECUKINUMAB

REACTIONS (3)
  - Device defective [Unknown]
  - Blister [Unknown]
  - Incorrect route of product administration [Unknown]

NARRATIVE: CASE EVENT DATE: 20230615
